FAERS Safety Report 26015671 (Version 1)
Quarter: 2025Q4

REPORT INFORMATION
  Report Type: Spontaneous
  Country: US (occurrence: US)
  Receive Date: 20251109
  Receipt Date: 20251109
  Transmission Date: 20260118
  Serious: No
  Sender: ELI LILLY AND COMPANY
  Company Number: US-ELI_LILLY_AND_COMPANY-US202510025159

PATIENT
  Age: 72 Year
  Sex: Female

DRUGS (1)
  1. ZEPBOUND [Suspect]
     Active Substance: TIRZEPATIDE
     Indication: Weight control
     Dosage: 2.5 MG, UNKNOWN
     Route: 058

REACTIONS (4)
  - Bowel movement irregularity [Recovering/Resolving]
  - Extra dose administered [Unknown]
  - Abdominal pain [Recovering/Resolving]
  - Constipation [Recovering/Resolving]

NARRATIVE: CASE EVENT DATE: 20251018
